FAERS Safety Report 7944743-1 (Version None)
Quarter: 2011Q4

REPORT INFORMATION
  Report Type: 
  Country: None (occurrence: None)
  Receive Date: 20111129
  Receipt Date: 20111122
  Transmission Date: 20120403
  Serious: Yes (Other)
  Sender: FDA-Public Use
  Company Number: BR-JNJFOC-20111105257

PATIENT
  Age: 25 Year
  Sex: Female
  Weight: 66 kg

DRUGS (1)
  1. ORTHO EVRA [Suspect]
     Indication: CONTRACEPTION
     Route: 062
     Dates: start: 20100202

REACTIONS (3)
  - ANAEMIA [None]
  - VAGINAL HAEMORRHAGE [None]
  - TOXICITY TO VARIOUS AGENTS [None]
